FAERS Safety Report 8850225 (Version 1)
Quarter: 2012Q4

REPORT INFORMATION
  Report Type: 
  Country: NO (occurrence: NO)
  Receive Date: 20121019
  Receipt Date: 20121019
  Transmission Date: 20130627
  Serious: Yes (Hospitalization)
  Sender: FDA-Public Use
  Company Number: NO-ASTRAZENECA-2012SE78028

PATIENT
  Age: 25707 Day
  Sex: Female

DRUGS (1)
  1. VIMOVO [Suspect]
     Indication: MUSCULOSKELETAL PAIN
     Dosage: 500 MG/20 MG 1DF TWICE A DAY
     Route: 048
     Dates: start: 20120810, end: 20120910

REACTIONS (6)
  - Anaemia [Recovered/Resolved]
  - Asthenia [Unknown]
  - Gastrointestinal haemorrhage [Unknown]
  - Tachycardia [Recovered/Resolved]
  - Dyspnoea [Recovered/Resolved]
  - Palpitations [Unknown]
